FAERS Safety Report 16227424 (Version 2)
Quarter: 2019Q2

REPORT INFORMATION
  Report Type: Spontaneous
  Country: AU (occurrence: AU)
  Receive Date: 20190423
  Receipt Date: 20190621
  Transmission Date: 20190711
  Serious: Yes (Hospitalization)
  Sender: FDA-Public Use
  Company Number: AU-B.I. PHARMACEUTICALS,INC./RIDGEFIELD-2019-BI-018098

PATIENT
  Age: 75 Year
  Sex: Female
  Weight: 42 kg

DRUGS (19)
  1. JARDIANCE [Suspect]
     Active Substance: EMPAGLIFLOZIN
     Indication: PRODUCT USED FOR UNKNOWN INDICATION
     Route: 065
  2. LANTUS [Concomitant]
     Active Substance: INSULIN GLARGINE
     Indication: DIABETES MELLITUS
     Dosage: FORM STRENGTH: 100U/ML ?FREQUENCY: INJECT 10 UNITS IN THE MORNING VIA SUBCUTANEOUS INJECTION
     Route: 058
  3. ATORVASTATIN PFIZER [Concomitant]
     Active Substance: ATORVASTATIN
     Indication: BLOOD CHOLESTEROL ABNORMAL
  4. COLOXYL WITH SENNA [Concomitant]
     Active Substance: DOCUSATE\SENNOSIDES
     Indication: CONSTIPATION PROPHYLAXIS
     Dosage: FORM STRENGTH: 50MG/8MG;  ?UNTIL BOWELS OPEN THEN ADJUST DOSE AS PER BOWEL MOTIONS
     Route: 065
  5. ATORVASTATIN PFIZER [Concomitant]
     Active Substance: ATORVASTATIN
     Indication: CEREBROVASCULAR ACCIDENT PROPHYLAXIS
  6. METFORMIN [Concomitant]
     Active Substance: METFORMIN HYDROCHLORIDE
     Indication: PRODUCT USED FOR UNKNOWN INDICATION
     Dosage: 5/1000 MG
     Route: 065
  7. PHOSPHATE SANDOZ [Concomitant]
     Active Substance: SODIUM PHOSPHATE, MONOBASIC, ANHYDROUS
     Indication: SUPPLEMENTATION THERAPY
     Dosage: FREQUENCY TEXT: DISSOLVE IN WATER AND DRINK 2 TABLETS TWICE A DAY
     Route: 048
  8. CARMELLOSE [Concomitant]
     Indication: DRY EYE
     Dosage: FORM STRENGTH: 0.5% IN 15ML ; ?DISCARD REMAINING CONTENTS 28 DAYS AFTER OPENING.
     Route: 061
  9. ATORVASTATIN PFIZER [Concomitant]
     Active Substance: ATORVASTATIN
     Indication: ISCHAEMIC HEART DISEASE PROPHYLAXIS
     Route: 065
  10. TRULICITY [Suspect]
     Active Substance: DULAGLUTIDE
     Indication: DIABETES MELLITUS
     Dosage: STRENGTH 1.5 MG/0.5 ML
     Route: 065
     Dates: start: 20190403, end: 20190411
  11. DURO-K [Concomitant]
     Active Substance: POTASSIUM CHLORIDE
     Indication: MINERAL SUPPLEMENTATION
     Dosage: FREQUENCY TEXT: SWALLOW WHOLE 2 TABLETS TWICE A DAY WITH FOOD
     Route: 065
  12. MOVICOL [Concomitant]
     Active Substance: POLYETHYLENE GLYCOL 3350\POTASSIUM CHLORIDE\SODIUM BICARBONATE\SODIUM CHLORIDE
     Indication: CONSTIPATION
     Dosage: SACHET; .? DISSOLVE EACH SACHET IN HALF A GLASS OF WATER.
     Route: 065
  13. HIPREX [Concomitant]
     Active Substance: METHENAMINE HIPPURATE
     Indication: CYSTITIS
     Dosage: FREQUENCY TEXT: TAKE 1 TABLET THREE TIMES A DAY
     Route: 065
  14. DOMPERIDONE [Concomitant]
     Active Substance: DOMPERIDONE
     Indication: PRODUCT USED FOR UNKNOWN INDICATION
     Route: 065
  15. MOTILIUM [Concomitant]
     Active Substance: DOMPERIDONE
     Indication: GASTROINTESTINAL DISORDER
     Dosage: FREQUENCY TEXT: TAKE 1 TABLET TWICE A DAY AT LEAST HALF AN HOUR BEFORE FOOD.
     Route: 065
  16. ACTONEL ONCE A MONTH [Concomitant]
     Indication: OSTEOPOROSIS PROPHYLAXIS
     Dosage: ON THE 18TH OF EACH MONTH, AN HR BEFORE FOOD. REMAIN UPRIGHT FOR 30 MIN AFTERWARDS.
     Route: 065
  17. STEMETIL [Concomitant]
     Active Substance: PROCHLORPERAZINE MALEATE
     Indication: NAUSEA
     Dosage: TAKE 1 TABLET 3 TIMES A DAY WHEN REQUIRED
     Route: 065
  18. NEXIUM [Concomitant]
     Active Substance: ESOMEPRAZOLE MAGNESIUM
     Indication: GASTROOESOPHAGEAL REFLUX DISEASE
     Route: 065
  19. NOVORAPID [Concomitant]
     Active Substance: INSULIN ASPART
     Indication: DIABETES MELLITUS
     Dosage: FORM STRENGTH; 100U/ML; ? SUBCUTANEOUS INJECTION
     Route: 058

REACTIONS (5)
  - Nausea [Unknown]
  - Product use issue [Unknown]
  - Sinus tachycardia [Unknown]
  - Euglycaemic diabetic ketoacidosis [Recovered/Resolved]
  - Vomiting [Unknown]

NARRATIVE: CASE EVENT DATE: 20190405
